FAERS Safety Report 4358347-3 (Version None)
Quarter: 2004Q2

REPORT INFORMATION
  Report Type: 
  Country: None (occurrence: None)
  Receive Date: 20040514
  Receipt Date: 20040505
  Transmission Date: 20050107
  Serious: Yes (Hospitalization)
  Sender: FDA-Public Use
  Company Number: PHRM2004FR01719

PATIENT
  Age: 46 Year
  Sex: Male

DRUGS (7)
  1. TEGRETOL [Suspect]
     Indication: EPILEPSY
     Dosage: 600 MG/DAY
     Route: 048
     Dates: start: 20031008, end: 20040301
  2. TEGRETOL [Suspect]
     Dosage: 500 MG/DAY
     Route: 048
     Dates: start: 20040301
  3. VALPROIC ACID [Interacting]
     Indication: EPILEPSY
     Route: 048
     Dates: start: 20031008
  4. NORVIR [Interacting]
     Indication: ACQUIRED IMMUNODEFICIENCY SYNDROME
     Route: 048
     Dates: start: 20031008
  5. AGENERASE [Concomitant]
     Indication: ACQUIRED IMMUNODEFICIENCY SYNDROME
     Route: 048
     Dates: start: 20031008
  6. SUSTIVA [Concomitant]
     Indication: ACQUIRED IMMUNODEFICIENCY SYNDROME
     Route: 048
     Dates: start: 20031008
  7. EPIVIR [Concomitant]
     Indication: ACQUIRED IMMUNODEFICIENCY SYNDROME
     Route: 048
     Dates: start: 20031008

REACTIONS (9)
  - AMMONIA INCREASED [None]
  - ANTICONVULSANT DRUG LEVEL INCREASED [None]
  - CEREBELLAR SYNDROME [None]
  - DIFFICULTY IN WALKING [None]
  - HEADACHE [None]
  - NAUSEA [None]
  - NYSTAGMUS [None]
  - VERTIGO [None]
  - VOMITING [None]
